FAERS Safety Report 13720991 (Version 1)
Quarter: 2017Q3

REPORT INFORMATION
  Report Type: Spontaneous
  Country: US (occurrence: US)
  Receive Date: 20170706
  Receipt Date: 20170706
  Transmission Date: 20171127
  Serious: No
  Sender: FDA-Public Use
  Company Number: US-ENDO PHARMACEUTICALS INC-2017-000316

PATIENT
  Age: 39 Year
  Sex: Female
  Weight: 54.43 kg

DRUGS (3)
  1. MICROGESTIN FE [Suspect]
     Active Substance: ETHINYL ESTRADIOL\FERROUS FUMARATE\NORETHINDRONE ACETATE
     Indication: CONTRACEPTION
     Dosage: UNK UNK, UNKNOWN
     Route: 065
     Dates: start: 20170101
  2. GILDESS FE 1/20 [Suspect]
     Active Substance: ETHINYL ESTRADIOL\NORETHINDRONE ACETATE
     Dosage: 1 DF, DAILY
     Route: 048
     Dates: start: 201606, end: 20161231
  3. GILDESS FE 1/20 [Suspect]
     Active Substance: ETHINYL ESTRADIOL\NORETHINDRONE ACETATE
     Indication: CONTRACEPTION
     Dosage: UNK UNK, UNKNOWN
     Route: 065
     Dates: start: 201604, end: 201606

REACTIONS (3)
  - Unintended pregnancy [Unknown]
  - Migraine [Not Recovered/Not Resolved]
  - Drug ineffective [Unknown]

NARRATIVE: CASE EVENT DATE: 201701
